FAERS Safety Report 4341838-9 (Version None)
Quarter: 2004Q2

REPORT INFORMATION
  Report Type: 
  Country: None (occurrence: None)
  Receive Date: 20040415
  Receipt Date: 20040409
  Transmission Date: 20050107
  Serious: Yes (Death, Hospitalization, Disabling, Other)
  Sender: FDA-Public Use
  Company Number: THQ2004A00351

PATIENT
  Age: 69 Year
  Sex: Male

DRUGS (1)
  1. LANSOPRAZOLE [Suspect]
     Dosage: 30 MG PER ORAL
     Route: 048
     Dates: start: 20031204, end: 20031212

REACTIONS (5)
  - COAGULOPATHY [None]
  - ERYTHEMA MULTIFORME [None]
  - MULTI-ORGAN FAILURE [None]
  - POST PROCEDURAL COMPLICATION [None]
  - STAPHYLOCOCCAL SEPSIS [None]
